FAERS Safety Report 25282347 (Version 1)
Quarter: 2025Q2

REPORT INFORMATION
  Report Type: Spontaneous
  Country: IN (occurrence: IN)
  Receive Date: 20250508
  Receipt Date: 20250508
  Transmission Date: 20250717
  Serious: Yes (Other)
  Sender: CIPLA
  Company Number: IN-CIPLA LTD.-2025IN01544

PATIENT

DRUGS (3)
  1. OSELTAMIVIR [Suspect]
     Active Substance: OSELTAMIVIR
     Indication: Influenza like illness
     Route: 065
  2. URSODIOL [Suspect]
     Active Substance: URSODIOL
     Indication: Pruritus
     Route: 065
  3. URSODIOL [Suspect]
     Active Substance: URSODIOL
     Indication: Hyperbilirubinaemia

REACTIONS (3)
  - Hyperbilirubinaemia [Unknown]
  - Pruritus [Unknown]
  - Exposure during pregnancy [Unknown]
